FAERS Safety Report 18438571 (Version 1)
Quarter: 2020Q4

REPORT INFORMATION
  Report Type: Spontaneous
  Country: US (occurrence: US)
  Receive Date: 20201028
  Receipt Date: 20201028
  Transmission Date: 20210114
  Serious: No
  Sender: FDA-Public Use
  Company Number: US-GE HEALTHCARE LIFE SCIENCES-2020CSU003350

PATIENT
  Age: 58 Year
  Sex: Male
  Weight: 102.04 kg

DRUGS (5)
  1. VISIPAQUE [Suspect]
     Active Substance: IODIXANOL
     Indication: DYSPNOEA
  2. VISIPAQUE [Suspect]
     Active Substance: IODIXANOL
     Indication: BLOOD CALCIUM INCREASED
  3. VISIPAQUE [Suspect]
     Active Substance: IODIXANOL
     Indication: CHEST PAIN
  4. VISIPAQUE [Suspect]
     Active Substance: IODIXANOL
     Indication: COMPUTERISED TOMOGRAM CORONARY ARTERY
     Dosage: 100 ML (5ML/SEC)
     Route: 042
     Dates: start: 20200721, end: 20200721
  5. VISIPAQUE [Suspect]
     Active Substance: IODIXANOL
     Indication: BRADYCARDIA

REACTIONS (3)
  - Nausea [Recovered/Resolved]
  - Throat tightness [Recovered/Resolved]
  - Vomiting [Recovered/Resolved]

NARRATIVE: CASE EVENT DATE: 20200721
